FAERS Safety Report 6131988-9 (Version None)
Quarter: 2009Q1

REPORT INFORMATION
  Report Type: 
  Country: None (occurrence: None)
  Receive Date: 20090325
  Receipt Date: 20090317
  Transmission Date: 20090719
  Serious: Yes (Hospitalization, Other)
  Sender: FDA-Public Use
  Company Number: PHHY2009BR10371

PATIENT
  Age: 62 Year
  Sex: Female

DRUGS (3)
  1. DIOVAN AMLO [Suspect]
  2. MAREVAN [Concomitant]
  3. DAFLON (DIOSMIN/HESPERIDIN) [Concomitant]

REACTIONS (4)
  - BLOOD PRESSURE INADEQUATELY CONTROLLED [None]
  - GAIT DISTURBANCE [None]
  - OEDEMA PERIPHERAL [None]
  - THROMBOSIS [None]
